FAERS Safety Report 16426428 (Version 2)
Quarter: 2019Q3

REPORT INFORMATION
  Report Type: Spontaneous
  Country: JP (occurrence: JP)
  Receive Date: 20190613
  Receipt Date: 20190701
  Transmission Date: 20191004
  Serious: Yes (Hospitalization, Other)
  Sender: FDA-Public Use
  Company Number: JP-PFIZER INC-2019242500

PATIENT
  Age: 8 Decade
  Sex: Female

DRUGS (8)
  1. POLLAKISU [Concomitant]
     Active Substance: OXYBUTYNIN CHLORIDE
     Dosage: UNK
  2. LYRICA [Suspect]
     Active Substance: PREGABALIN
     Indication: PROCEDURAL PAIN
     Dosage: 75 MG, DAILY
     Dates: start: 201612
  3. VITAMINS NOS [Concomitant]
     Active Substance: VITAMINS
     Dosage: UNK
  4. BONVIVA [Concomitant]
     Active Substance: IBANDRONATE SODIUM
     Dosage: UNK, MONTHLY
  5. LYRICA [Suspect]
     Active Substance: PREGABALIN
     Dosage: 25 MG, DAILY
     Dates: start: 20190508, end: 2019
  6. DOMPERIDONE [Concomitant]
     Active Substance: DOMPERIDONE
     Dosage: UNK
  7. CELECOX [Concomitant]
     Active Substance: CELECOXIB
     Dosage: UNK
  8. LYRICA [Suspect]
     Active Substance: PREGABALIN
     Indication: PAIN IN EXTREMITY
     Dosage: 100 MG, DAILY
     Dates: start: 20170227

REACTIONS (8)
  - Off label use [Unknown]
  - Dizziness [Unknown]
  - Neurogenic bladder [Unknown]
  - Therapeutic response decreased [Unknown]
  - Loss of consciousness [Not Recovered/Not Resolved]
  - Hepatic function abnormal [Unknown]
  - Pollakiuria [Not Recovered/Not Resolved]
  - Hypertonic bladder [Unknown]

NARRATIVE: CASE EVENT DATE: 201612
